FAERS Safety Report 5429826-2 (Version None)
Quarter: 2007Q3

REPORT INFORMATION
  Report Type: 
  Country: None (occurrence: None)
  Receive Date: 20070829
  Receipt Date: 20070817
  Transmission Date: 20080115
  Serious: Yes (Other)
  Sender: FDA-Public Use
  Company Number: US-PFIZER INC-2007034471

PATIENT
  Sex: Male

DRUGS (2)
  1. CHANTIX [Suspect]
  2. TRICOR [Suspect]

REACTIONS (1)
  - ANAL HAEMORRHAGE [None]
